FAERS Safety Report 22216811 (Version 1)
Quarter: 2023Q2

REPORT INFORMATION
  Report Type: Spontaneous
  Country: IE (occurrence: IE)
  Receive Date: 20230417
  Receipt Date: 20230417
  Transmission Date: 20230721
  Serious: Yes (Other)
  Sender: FDA-Public Use
  Company Number: IE-SUN PHARMACEUTICAL INDUSTRIES LTD-2023R1-384889

PATIENT
  Age: 38 Year
  Sex: Female

DRUGS (5)
  1. CLOBAZAM [Suspect]
     Active Substance: CLOBAZAM
     Indication: Sturge-Weber syndrome
     Dosage: 10 MILLIGRAM, TID
     Route: 065
  2. LAMOTRIGINE [Suspect]
     Active Substance: LAMOTRIGINE
     Indication: Sturge-Weber syndrome
     Dosage: 250 MILLIGRAM, BID
     Route: 065
  3. LAMOTRIGINE [Suspect]
     Active Substance: LAMOTRIGINE
     Dosage: 275 MILLIGRAM, BID
     Route: 065
  4. ZONISAMIDE [Suspect]
     Active Substance: ZONISAMIDE
     Indication: Sturge-Weber syndrome
     Dosage: 250 MILLIGRAM, BID
     Route: 065
  5. MIDAZOLAM [Suspect]
     Active Substance: MIDAZOLAM
     Indication: Sturge-Weber syndrome
     Dosage: 10 MILLIGRAM
     Route: 065

REACTIONS (5)
  - Exposure during pregnancy [Unknown]
  - Polyhydramnios [Unknown]
  - Gestational diabetes [Unknown]
  - Drug ineffective [Unknown]
  - Live birth [Unknown]
